FAERS Safety Report 5527259-1 (Version None)
Quarter: 2007Q4

REPORT INFORMATION
  Report Type: 
  Country: None (occurrence: None)
  Receive Date: 20071128
  Receipt Date: 20071126
  Transmission Date: 20080405
  Serious: Yes (Other)
  Sender: FDA-Public Use
  Company Number: A0696094A

PATIENT
  Age: 58 Year
  Sex: Female

DRUGS (2)
  1. SENSODYNE-F [Suspect]
     Indication: DENTAL CLEANING
     Dates: start: 20071001
  2. POLYPHARMACY [Concomitant]

REACTIONS (3)
  - ANAPHYLACTIC REACTION [None]
  - LIP SWELLING [None]
  - SWOLLEN TONGUE [None]
